FAERS Safety Report 7113970-8 (Version None)
Quarter: 2010Q4

REPORT INFORMATION
  Report Type: 
  Country: None (occurrence: None)
  Receive Date: 20101119
  Receipt Date: 20101112
  Transmission Date: 20110411
  Serious: Yes (Other)
  Sender: FDA-Public Use
  Company Number: A0891507A

PATIENT
  Sex: Male

DRUGS (11)
  1. AVODART [Suspect]
     Indication: BENIGN PROSTATIC HYPERPLASIA
     Dosage: .5MG PER DAY
     Route: 065
     Dates: start: 20101021
  2. NITROGLYCERIN [Concomitant]
     Indication: CHEST PAIN
     Route: 060
     Dates: start: 20020418
  3. MAALOX [Concomitant]
     Route: 065
  4. PRAVASTATIN [Concomitant]
     Indication: BLOOD CHOLESTEROL
     Dosage: 10MG AT NIGHT
     Route: 065
  5. ACETAMINOPHEN [Concomitant]
     Dosage: 500MG AS REQUIRED
     Route: 065
  6. COUMADIN [Concomitant]
     Route: 065
     Dates: start: 20050419
  7. AMIODARONE [Concomitant]
     Dosage: 200MG PER DAY
     Route: 065
     Dates: start: 20050419
  8. PERINDOPRIL ERBUMINE [Concomitant]
     Dosage: 4MG IN THE MORNING
     Route: 065
     Dates: start: 20020812
  9. METFORMIN HCL [Concomitant]
     Route: 065
     Dates: start: 20020913
  10. BROMAZEPAM [Concomitant]
     Dosage: 1.5MG AS REQUIRED
     Route: 065
     Dates: start: 20100503
  11. TRIAMCINOLONE [Concomitant]
     Route: 030
     Dates: start: 20030430

REACTIONS (1)
  - PALPITATIONS [None]
